FAERS Safety Report 9553205 (Version 1)
Quarter: 2013Q3

REPORT INFORMATION
  Report Type: Spontaneous
  Country: US (occurrence: US)
  Receive Date: 20130925
  Receipt Date: 20130925
  Transmission Date: 20140515
  Serious: No
  Sender: FDA-Public Use
  Company Number: US-009507513-1309USA007810

PATIENT
  Sex: Male

DRUGS (6)
  1. PEGINTRON [Suspect]
     Indication: HEPATITIS C
     Dosage: DOSE FORM UNKNOWN
     Route: 048
     Dates: start: 20030103, end: 20031205
  2. PEGINTRON [Suspect]
     Indication: HEPATITIS C
     Dosage: REDIPEN, DOSE UNKNOWN
     Route: 048
     Dates: start: 20130208
  3. RIBAVIRIN [Suspect]
     Indication: HEPATITIS C
     Dosage: UNKNOWN
     Route: 048
     Dates: start: 20030103, end: 20031205
  4. RIBAVIRIN [Suspect]
     Dosage: UNKNOWN
     Route: 048
     Dates: start: 20130208
  5. INCIVEK [Suspect]
     Indication: HEPATITIS C
     Dosage: UNKNOWN
     Dates: start: 20030103, end: 20031205
  6. INCIVEK [Suspect]
     Dosage: UNKNOWN
     Dates: start: 20130208, end: 20130503

REACTIONS (7)
  - Proctalgia [Unknown]
  - Frustration [Unknown]
  - Hepatitis C virus test positive [Unknown]
  - Diarrhoea [Unknown]
  - Malaise [Unknown]
  - Pain [Unknown]
  - Drug ineffective [Unknown]
